FAERS Safety Report 18921123 (Version 2)
Quarter: 2021Q1

REPORT INFORMATION
  Report Type: Report from Study
  Country: IL (occurrence: IL)
  Receive Date: 20210222
  Receipt Date: 20210305
  Transmission Date: 20210420
  Serious: Yes (Other)
  Sender: FDA-Public Use
  Company Number: IL-TAKEDA-IL201928765

PATIENT
  Age: 22 Year
  Sex: Female
  Weight: 52 kg

DRUGS (8)
  1. VELAGLUCERASE ALFA [Suspect]
     Active Substance: VELAGLUCERASE ALFA
     Indication: GAUCHER^S DISEASE
     Dosage: 7 DOSAGE FORM, 1X/2WKS
     Route: 042
     Dates: start: 20140114
  2. VELAGLUCERASE ALFA [Suspect]
     Active Substance: VELAGLUCERASE ALFA
     Dosage: 7/8 VIALS ALTERNATING 1X/2WKS
     Route: 042
     Dates: start: 20140114
  3. VELAGLUCERASE ALFA [Suspect]
     Active Substance: VELAGLUCERASE ALFA
     Dosage: 7 DOSAGE FORM, 1X/2WKS
     Route: 042
     Dates: start: 20140114
  4. CEREZYME [Concomitant]
     Active Substance: IMIGLUCERASE
     Indication: PRODUCT USED FOR UNKNOWN INDICATION
  5. VELAGLUCERASE ALFA [Suspect]
     Active Substance: VELAGLUCERASE ALFA
     Dosage: 7 DOSAGE FORM, 1X/2WKS
     Route: 042
     Dates: start: 20140114
  6. CEREZYME [Concomitant]
     Active Substance: IMIGLUCERASE
     Indication: PRODUCT USED FOR UNKNOWN INDICATION
  7. VELAGLUCERASE ALFA [Suspect]
     Active Substance: VELAGLUCERASE ALFA
     Dosage: 7 DOSAGE FORM, 1X/2WKS
     Route: 042
  8. VELAGLUCERASE ALFA [Suspect]
     Active Substance: VELAGLUCERASE ALFA
     Dosage: 7 DOSAGE FORM, Q2WEEKS
     Route: 042
     Dates: start: 20140114

REACTIONS (12)
  - Abortion spontaneous [Recovered/Resolved]
  - Weight increased [Unknown]
  - Platelet count decreased [Unknown]
  - Breast feeding [Unknown]
  - Exposure during pregnancy [Recovered/Resolved]
  - Malaise [Not Recovered/Not Resolved]
  - Myalgia [Recovering/Resolving]
  - Pyrexia [Recovering/Resolving]
  - Asthenia [Not Recovered/Not Resolved]
  - Breast inflammation [Not Recovered/Not Resolved]
  - Pharyngeal inflammation [Recovering/Resolving]
  - Oropharyngeal pain [Not Recovered/Not Resolved]

NARRATIVE: CASE EVENT DATE: 20200129
